FAERS Safety Report 10523951 (Version 1)
Quarter: 2014Q4

REPORT INFORMATION
  Report Type: Spontaneous
  Country: IQ (occurrence: None)
  Receive Date: 20141015
  Receipt Date: 20141015
  Transmission Date: 20150528
  Serious: No
  Sender: FDA-Public Use
  Company Number: None

PATIENT
  Age: 6 Month
  Sex: Male
  Weight: 12 kg

DRUGS (1)
  1. DITROPAN [Suspect]
     Active Substance: OXYBUTYNIN CHLORIDE
     Indication: BLADDER DISORDER
     Route: 048

REACTIONS (4)
  - Full blood count abnormal [None]
  - White blood cell count abnormal [None]
  - Red blood cell count abnormal [None]
  - Platelet count abnormal [None]
